FAERS Safety Report 16761478 (Version 1)
Quarter: 2019Q3

REPORT INFORMATION
  Report Type: Report from Study
  Country: GR (occurrence: GR)
  Receive Date: 20190830
  Receipt Date: 20190830
  Transmission Date: 20191005
  Serious: Yes (Death, Hospitalization, Other)
  Sender: FDA-Public Use
  Company Number: GR-AMGEN-GRCSL2019138808

PATIENT
  Age: 72 Year
  Sex: Male

DRUGS (4)
  1. MEMANTINE. [Concomitant]
     Active Substance: MEMANTINE
     Indication: DEMENTIA
     Dosage: 10 MILLIGRAM, 1X1
  2. KYPROLIS [Suspect]
     Active Substance: CARFILZOMIB
     Indication: PLASMA CELL MYELOMA
     Dosage: 112 MILLIGRAM
     Route: 065
     Dates: start: 201905
  3. ANGORON [Concomitant]
     Active Substance: AMIODARONE HYDROCHLORIDE
     Indication: ARRHYTHMIA
     Dosage: 200 MILLIGRAM, 1X1
  4. BACTRIMEL [Concomitant]
     Active Substance: SULFAMETHOXAZOLE\TRIMETHOPRIM
     Dosage: (800+160)MG (1X2), 2 TIMES/WK

REACTIONS (2)
  - Cardiac arrest [Fatal]
  - Respiratory tract infection [Fatal]

NARRATIVE: CASE EVENT DATE: 2019
